FAERS Safety Report 15279083 (Version 1)
Quarter: 2018Q3

REPORT INFORMATION
  Report Type: Report from Study
  Country: IT (occurrence: IT)
  Receive Date: 20180815
  Receipt Date: 20180815
  Transmission Date: 20181010
  Serious: Yes (Hospitalization, Other)
  Sender: FDA-Public Use
  Company Number: IT-BRISTOL-MYERS SQUIBB COMPANY-BMS-2018-074300

PATIENT
  Age: 73 Year
  Sex: Male
  Weight: 83.1 kg

DRUGS (3)
  1. LYRICA [Concomitant]
     Active Substance: PREGABALIN
     Indication: TUMOUR PAIN
     Dosage: 75 MG, BID
     Route: 048
     Dates: start: 20170706
  2. NIVOLUMAB [Suspect]
     Active Substance: NIVOLUMAB
     Indication: SQUAMOUS CELL CARCINOMA OF HEAD AND NECK
     Dosage: 1 DF, Q2WK
     Route: 042
     Dates: start: 20180524, end: 20180622
  3. TWICE [Concomitant]
     Indication: TUMOUR PAIN
     Dosage: 30 MG, BID
     Route: 048
     Dates: start: 20170820

REACTIONS (1)
  - Acute respiratory failure [Recovering/Resolving]

NARRATIVE: CASE EVENT DATE: 20180724
